FAERS Safety Report 9944997 (Version 1)
Quarter: 2014Q1

REPORT INFORMATION
  Report Type: Report from Study
  Country: US (occurrence: US)
  Receive Date: 20140303
  Receipt Date: 20140303
  Transmission Date: 20141002
  Serious: Yes (Other)
  Sender: FDA-Public Use
  Company Number: US-ABBVIE-13P-163-1052516-00

PATIENT
  Sex: Female
  Weight: 57.2 kg

DRUGS (11)
  1. HUMIRA [Suspect]
     Indication: RHEUMATOID ARTHRITIS
     Dates: start: 201004, end: 201202
  2. HUMIRA [Suspect]
  3. METHOTREXATE [Suspect]
     Indication: RHEUMATOID ARTHRITIS
     Dates: end: 201202
  4. PREMARIN [Concomitant]
     Indication: HORMONE REPLACEMENT THERAPY
  5. PREMARIN [Concomitant]
  6. MULTIVITAMIN [Concomitant]
     Indication: VITAMIN SUPPLEMENTATION
  7. CALCIUM [Concomitant]
     Indication: MINERAL SUPPLEMENTATION
  8. VITAMIN D3 [Concomitant]
     Indication: VITAMIN SUPPLEMENTATION
  9. FOLIC ACID [Concomitant]
     Indication: VITAMIN SUPPLEMENTATION
  10. FISH OIL [Concomitant]
     Indication: SUPPLEMENTATION THERAPY
  11. PREDNISONE [Concomitant]
     Indication: RHEUMATOID ARTHRITIS
     Dosage: VARIED FROM 2-5 MG
     Dates: end: 201005

REACTIONS (11)
  - Cataract [Recovered/Resolved]
  - Aphthous stomatitis [Not Recovered/Not Resolved]
  - Feeling abnormal [Recovered/Resolved]
  - Generalised oedema [Recovered/Resolved]
  - Joint swelling [Recovered/Resolved]
  - Thrombosis [Recovered/Resolved]
  - Nodule [Not Recovered/Not Resolved]
  - Fatigue [Not Recovered/Not Resolved]
  - Abnormal sensation in eye [Not Recovered/Not Resolved]
  - Nasal dryness [Not Recovered/Not Resolved]
  - Joint swelling [Not Recovered/Not Resolved]
